FAERS Safety Report 6683976-1 (Version None)
Quarter: 2010Q2

REPORT INFORMATION
  Report Type: 
  Country: None (occurrence: None)
  Receive Date: 20100416
  Receipt Date: 20100406
  Transmission Date: 20101027
  Serious: Yes (Hospitalization, Other)
  Sender: FDA-Public Use
  Company Number: IT-JNJFOC-20100401772

PATIENT
  Age: 10 Year
  Sex: Female

DRUGS (5)
  1. REMICADE [Suspect]
     Indication: JUVENILE ARTHRITIS
     Route: 042
  2. ADALIMUMAB [Suspect]
     Indication: JUVENILE ARTHRITIS
  3. NSAID [Concomitant]
  4. CORTICOSTEROIDS [Concomitant]
     Route: 048
  5. METHOTREXATE [Concomitant]

REACTIONS (3)
  - OROPHARYNGEAL PAIN [None]
  - STREPTOCOCCUS TEST POSITIVE [None]
  - SYDENHAM'S CHOREA [None]
